FAERS Safety Report 13514656 (Version 1)
Quarter: 2017Q2

REPORT INFORMATION
  Report Type: Spontaneous
  Country: IT (occurrence: IT)
  Receive Date: 20170504
  Receipt Date: 20170504
  Transmission Date: 20170830
  Serious: Yes (Hospitalization, Other)
  Sender: FDA-Public Use
  Company Number: IT-NOVOPROD-543260

PATIENT
  Age: 30 Year
  Sex: Female

DRUGS (3)
  1. TRESIBA [Suspect]
     Active Substance: INSULIN DEGLUDEC
     Indication: TYPE 1 DIABETES MELLITUS
     Dosage: 22 IU
     Route: 058
     Dates: start: 20160101
  2. HUMALOG [Suspect]
     Active Substance: INSULIN LISPRO
     Indication: TYPE 1 DIABETES MELLITUS
     Dosage: 26 IU
     Route: 058
     Dates: start: 20160101
  3. ESTROGEN [Concomitant]
     Active Substance: ESTROGENS
     Indication: MENSTRUATION IRREGULAR
     Dosage: UNKNOWN
     Route: 065

REACTIONS (3)
  - Sopor [Recovering/Resolving]
  - Restlessness [Recovering/Resolving]
  - Hypoglycaemia [Recovering/Resolving]

NARRATIVE: CASE EVENT DATE: 20160624
